FAERS Safety Report 14958510 (Version 1)
Quarter: 2018Q2

REPORT INFORMATION
  Report Type: Spontaneous
  Country: DE (occurrence: DE)
  Receive Date: 20180531
  Receipt Date: 20180531
  Transmission Date: 20180711
  Serious: Yes (Congenital Anomaly)
  Sender: FDA-Public Use
  Company Number: DE-AUROBINDO-AUR-APL-2018-028322

PATIENT
  Age: 1 Day
  Sex: Male
  Weight: 1.1 kg

DRUGS (4)
  1. CITALOPRAM [Suspect]
     Active Substance: CITALOPRAM HYDROBROMIDE
     Indication: SCHIZOAFFECTIVE DISORDER
     Dosage: 10 [MG/D (ALLE 2 D) ], 0. - 28.1. GESTATIONAL WEEK
     Route: 064
  2. QUILONUM RETARD [Suspect]
     Active Substance: LITHIUM CARBONATE
     Indication: SCHIZOAFFECTIVE DISORDER
     Dosage: 1125 [MG/D (450-0-675 MG/D) ] 0. - 28.1. GESTATIONAL WEEK
     Route: 064
     Dates: start: 20161205, end: 20170620
  3. BETAMETHASONE. [Concomitant]
     Active Substance: BETAMETHASONE
     Indication: MATERNAL THERAPY TO ENHANCE FOETAL LUNG MATURITY
     Dosage: 27.4. - 27.5. GESTATIONAL WEEK
     Route: 064
     Dates: start: 20170616, end: 20170617
  4. FOLIC ACID. [Concomitant]
     Active Substance: FOLIC ACID
     Indication: PROPHYLAXIS OF NEURAL TUBE DEFECT
     Dosage: 0.4 [MG/D ], 0. - 8.3. GESTATIONAL WEEK
     Route: 064
     Dates: start: 20161205, end: 20170202

REACTIONS (7)
  - Ventricular septal defect [Not Recovered/Not Resolved]
  - Patent ductus arteriosus [Recovered/Resolved]
  - Atrial septal defect [Recovered/Resolved]
  - Neonatal respiratory distress syndrome [Recovered/Resolved]
  - Cardiac aneurysm [Unknown]
  - Nephrocalcinosis [Unknown]
  - Foetal exposure during pregnancy [Unknown]

NARRATIVE: CASE EVENT DATE: 20170620
